FAERS Safety Report 9229958 (Version 1)
Quarter: 2013Q2

REPORT INFORMATION
  Report Type: Spontaneous
  Country: US (occurrence: None)
  Receive Date: 20130412
  Receipt Date: 20130412
  Transmission Date: 20140414
  Serious: Yes (Other)
  Sender: FDA-Public Use
  Company Number: None

PATIENT
  Age: 63 Year
  Sex: Female
  Weight: 61.24 kg

DRUGS (1)
  1. RECLAST [Suspect]
     Indication: OSTEOPOROSIS
     Dosage: SINGLE INFUSION
     Dates: start: 20130222, end: 20130222

REACTIONS (6)
  - Pain [None]
  - Syncope [None]
  - Fatigue [None]
  - Arthralgia [None]
  - Back pain [None]
  - Chest pain [None]
